FAERS Safety Report 7360568-2 (Version None)
Quarter: 2011Q1

REPORT INFORMATION
  Report Type: 
  Country: None (occurrence: None)
  Receive Date: 20110310
  Receipt Date: 20110223
  Transmission Date: 20110831
  Serious: Yes (Congenital Anomaly)
  Sender: FDA-Public Use
  Company Number: GB-DEXPHARM-20110274

PATIENT
  Sex: Female

DRUGS (5)
  1. LYRICA [Suspect]
     Indication: PAIN
     Dosage: 2 DF DOSAGE FORM ACTIVE SUBSTANCES  TRANSPLACENTAL
     Route: 064
  2. ACETAMINOPHEN AND CODEINE PHOSPHATE [Suspect]
     Dosage: 2 OF DOSAGE FORM  ACTIVE SUBSTANCES  TRANSPLACENTAL
     Route: 064
  3. OMEPRAZOLE [Suspect]
     Dosage: 20 MG MILLGRAM(S)  SEP. DOSAGES / INTERVAL: 1 IN 1 DAY   TRANSPLACENTAL
     Route: 064
  4. HYDROXOCOBALAMIN [Suspect]
     Indication: VITAMIN B12 DEFICIENCY
     Dosage: 3 DF DOSAGE FORM   ACTIVE SUBSTANCES TRANSPLACENTAL
     Route: 064
  5. FOLIC ACID [Suspect]
     Dosage: 1 DF DOSAGE FORM   ACTIVE SUBSTANCES TRANSPLACENTAL
     Route: 064

REACTIONS (3)
  - HIP DYSPLASIA [None]
  - FORCEPS DELIVERY [None]
  - MATERNAL DRUGS AFFECTING FOETUS [None]
